FAERS Safety Report 25815306 (Version 1)
Quarter: 2025Q3

REPORT INFORMATION
  Report Type: Spontaneous
  Country: US (occurrence: US)
  Receive Date: 20250918
  Receipt Date: 20250918
  Transmission Date: 20251021
  Serious: No
  Sender: Haleon PLC
  Company Number: US-HALEON-2262977

PATIENT
  Age: 63 Year
  Sex: Male

DRUGS (2)
  1. GAS-X EXTRA STRENGTH [Suspect]
     Active Substance: DIMETHICONE
     Indication: Flatulence
  2. GAS-X EXTRA STRENGTH [Suspect]
     Active Substance: DIMETHICONE
     Indication: Flatulence

REACTIONS (3)
  - Flatulence [Unknown]
  - Drug ineffective [Unknown]
  - Condition aggravated [Unknown]
